FAERS Safety Report 6159243-1 (Version None)
Quarter: 2009Q2

REPORT INFORMATION
  Report Type: 
  Country: None (occurrence: None)
  Receive Date: 20090414
  Receipt Date: 20090330
  Transmission Date: 20091009
  Serious: Yes (Hospitalization)
  Sender: FDA-Public Use
  Company Number: IDA-00194

PATIENT
  Sex: Male

DRUGS (8)
  1. PROPRANOLOL [Suspect]
     Dosage: 40 MG DAILY ORAL FORMULATION: TABLET
     Route: 048
  2. DIGOXIN [Suspect]
     Dosage: 1 DF DAILY ORAL FORMULATION
     Route: 048
  3. XATRAL (ALFUZOSIN) [Suspect]
     Dosage: 10 MG DAILY ORAL FORMULATION: TABLET CONTR REL
     Route: 048
  4. HALDOL [Suspect]
     Dosage: 1DF 30 DF DAILY ORAL FORMULATION: DROPS
     Route: 048
     Dates: end: 20090124
  5. KAREDEGIC (ACETYLSALICYLATE LYSINE) [Concomitant]
  6. VITAMIN B1 AND B6 (PYRIDOXINE, THIAMINE) [Concomitant]
  7. ANDROCUR (CYPROTERONE ACETATE) [Concomitant]
  8. ACETAMINOPHEN [Concomitant]

REACTIONS (5)
  - AGITATION [None]
  - DRUG INTERACTION [None]
  - FALL [None]
  - SOMNOLENCE [None]
  - UNEVALUABLE EVENT [None]
